FAERS Safety Report 22042828 (Version 1)
Quarter: 2023Q1

REPORT INFORMATION
  Report Type: Spontaneous
  Country: CN (occurrence: CN)
  Receive Date: 20230228
  Receipt Date: 20230228
  Transmission Date: 20230417
  Serious: Yes (Life-Threatening)
  Sender: FDA-Public Use
  Company Number: CN-009507513-2302CHN006910

PATIENT
  Age: 68 Year
  Sex: Male
  Weight: 50 kg

DRUGS (3)
  1. CILASTATIN SODIUM\IMIPENEM [Suspect]
     Active Substance: CILASTATIN SODIUM\IMIPENEM
     Indication: Pneumonia
     Dosage: 1 G, Q12H
     Route: 041
     Dates: start: 20230114, end: 20230117
  2. HEPARIN CALCIUM [Suspect]
     Active Substance: HEPARIN CALCIUM
     Indication: Thrombosis prophylaxis
     Dosage: 1 ML, QOD
     Route: 058
     Dates: start: 20230110, end: 20230117
  3. SODIUM CHLORIDE [Concomitant]
     Active Substance: SODIUM CHLORIDE
     Dosage: 100 MILLIGRAM, Q12H
     Route: 041
     Dates: start: 20230114, end: 20230117

REACTIONS (4)
  - Platelet count decreased [Recovering/Resolving]
  - Skin induration [Unknown]
  - Haematuria [Unknown]
  - Product use issue [Unknown]

NARRATIVE: CASE EVENT DATE: 20230114
